FAERS Safety Report 18701758 (Version 1)
Quarter: 2021Q1

REPORT INFORMATION
  Report Type: Report from Study
  Country: GB (occurrence: GB)
  Receive Date: 20210105
  Receipt Date: 20210105
  Transmission Date: 20210419
  Serious: Yes (Hospitalization)
  Sender: FDA-Public Use
  Company Number: GB-MYLANLABS-2020M1106831

PATIENT
  Sex: Female

DRUGS (1)
  1. BRABIO 20 MG/ML, SOLUTION FOR INJECTION, PRE?FILLED SYRINGE [Suspect]
     Active Substance: GLATIRAMER ACETATE
     Indication: MULTIPLE SCLEROSIS
     Dosage: 20 MILLIGRAM, QD
     Route: 058
     Dates: start: 2016

REACTIONS (3)
  - Fall [Unknown]
  - Decubitus ulcer [Unknown]
  - Urinary tract infection [Unknown]
